FAERS Safety Report 9293127 (Version 3)
Quarter: 2014Q1

REPORT INFORMATION
  Report Type: Spontaneous
  Country: GB (occurrence: None)
  Receive Date: 20130514
  Receipt Date: 20140130
  Transmission Date: 20141002
  Serious: Yes (Death)
  Sender: FDA-Public Use
  Company Number: 2013AP004964

PATIENT
  Age: 39 Year
  Sex: Male

DRUGS (2)
  1. AMISULPRIDE [Suspect]
     Indication: SCHIZOPHRENIA
  2. CITALOPRAM [Suspect]
     Indication: DEPRESSION
     Route: 048
     Dates: start: 20111128

REACTIONS (3)
  - Drug interaction [None]
  - Fall [None]
  - Drug level above therapeutic [None]
